FAERS Safety Report 4458182-1 (Version None)
Quarter: 2004Q3

REPORT INFORMATION
  Report Type: 
  Country: None (occurrence: None)
  Receive Date: 20040923
  Receipt Date: 20040914
  Transmission Date: 20050211
  Serious: Yes (Disabling, Other)
  Sender: FDA-Public Use
  Company Number: A-US2004-07422

PATIENT
  Age: 60 Year
  Sex: Male
  Weight: 71.7 kg

DRUGS (2)
  1. TRACLEER [Suspect]
     Dosage: SEE IMAGE
     Route: 048
     Dates: start: 20040809, end: 20040831
  2. VICODIN [Concomitant]

REACTIONS (4)
  - MACULAR OEDEMA [None]
  - PAPILLOEDEMA [None]
  - UVEITIS [None]
  - VISUAL ACUITY REDUCED [None]
